FAERS Safety Report 14238844 (Version 1)
Quarter: 2017Q4

REPORT INFORMATION
  Report Type: Spontaneous
  Country: AR (occurrence: AR)
  Receive Date: 20171130
  Receipt Date: 20171130
  Transmission Date: 20180321
  Serious: Yes (Other)
  Sender: FDA-Public Use
  Company Number: AR-JNJFOC-20171133767

PATIENT
  Age: 84 Year
  Sex: Female

DRUGS (1)
  1. TOPAMAC [Suspect]
     Active Substance: TOPIRAMATE
     Indication: PRODUCT USED FOR UNKNOWN INDICATION
     Route: 048

REACTIONS (3)
  - Vertigo [Unknown]
  - Anosmia [Unknown]
  - Blindness [Unknown]
